FAERS Safety Report 4809887-1 (Version None)
Quarter: 2005Q4

REPORT INFORMATION
  Report Type: 
  Country: None (occurrence: None)
  Receive Date: 20051026
  Receipt Date: 19080729
  Transmission Date: 20060501
  Serious: Yes (Death)
  Sender: FDA-Public Use
  Company Number: IT-NOVOPROD-246164

PATIENT
  Age: 42 Year
  Sex: Male
  Weight: 98 kg

DRUGS (1)
  1. NOVOSEVEN [Suspect]
     Indication: TRAUMATIC HAEMORRHAGE
     Dosage: TWO INJECTIONS (INTERVAL OF 10 MIN)
     Route: 042
     Dates: start: 20050728, end: 20050728

REACTIONS (2)
  - CONCOMITANT DISEASE PROGRESSION [None]
  - SHOCK HAEMORRHAGIC [None]
